FAERS Safety Report 16042212 (Version 1)
Quarter: 2019Q1

REPORT INFORMATION
  Report Type: Spontaneous
  Country: US (occurrence: US)
  Receive Date: 20190306
  Receipt Date: 20190306
  Transmission Date: 20190418
  Serious: Yes (Other)
  Sender: FDA-Public Use
  Company Number: US-AKORN PHARMACEUTICALS-2018AKN00278

PATIENT
  Age: 36 Year
  Sex: Female

DRUGS (3)
  1. TRAZODONE [Concomitant]
     Active Substance: TRAZODONE HYDROCHLORIDE
  2. BUSPAR [Concomitant]
     Active Substance: BUSPIRONE HYDROCHLORIDE
  3. MYORISAN [Suspect]
     Active Substance: ISOTRETINOIN
     Indication: ACNE CYSTIC
     Dosage: 20 MG, 1X/DAY AT NIGHT
     Route: 048
     Dates: start: 20180206, end: 20180211

REACTIONS (5)
  - Idiopathic intracranial hypertension [Recovering/Resolving]
  - Visual impairment [Recovering/Resolving]
  - Auditory disorder [Recovering/Resolving]
  - Hypersensitivity [Recovering/Resolving]
  - Migraine with aura [Recovering/Resolving]

NARRATIVE: CASE EVENT DATE: 201802
